FAERS Safety Report 17158651 (Version 3)
Quarter: 2020Q1

REPORT INFORMATION
  Report Type: Spontaneous
  Country: DE (occurrence: DE)
  Receive Date: 20191216
  Receipt Date: 20200327
  Transmission Date: 20200409
  Serious: Yes (Other)
  Sender: FDA-Public Use
  Company Number: DE-TEVA-2019-DE-1150246

PATIENT
  Age: 71 Year
  Sex: Male
  Weight: 95 kg

DRUGS (1)
  1. AMILORID COMP.-RATIOPHARM 5MG/50 MG TABLETTEN [Suspect]
     Active Substance: AMILORIDE HYDROCHLORIDE\HYDROCHLOROTHIAZIDE
     Indication: HYPERTENSION
     Dosage: 1 DF CONTAINS: AMILORIDHYDROCHLORID 5 MG AND HYDROCHLOROTHIAZIDE 50MG
     Route: 048
     Dates: start: 2012, end: 20191006

REACTIONS (3)
  - Skin cancer [Unknown]
  - Actinic keratosis [Not Recovered/Not Resolved]
  - Basal cell carcinoma [Not Recovered/Not Resolved]

NARRATIVE: CASE EVENT DATE: 20190201
